FAERS Safety Report 26098544 (Version 2)
Quarter: 2025Q4

REPORT INFORMATION
  Report Type: Spontaneous
  Country: EU (occurrence: EU)
  Receive Date: 20251127
  Receipt Date: 20251204
  Transmission Date: 20260117
  Serious: Yes (Death)
  Sender: JOHNSON AND JOHNSON
  Company Number: EU-JNJFOC-20251170845

PATIENT
  Age: 43 Year
  Sex: Female
  Weight: 50 kg

DRUGS (17)
  1. RYBREVANT [Suspect]
     Active Substance: AMIVANTAMAB-VMJW
     Indication: Non-small cell lung cancer
     Route: 065
  2. AMOXICILLIN\CLAVULANATE POTASSIUM [Concomitant]
     Active Substance: AMOXICILLIN\CLAVULANATE POTASSIUM
     Indication: Product used for unknown indication
     Dosage: 875MG/125MG TBL FLM 211 PACK1 TABLET EVERY 8 HRS
  3. METRONIDAZOLE [Concomitant]
     Active Substance: METRONIDAZOLE
     Indication: Product used for unknown indication
     Dosage: 250MG TBL FLM 202 PACKS2 TABLETS EVERY 8 HRS
  4. BUTYLSCOPOLAMINE BROMIDE [Concomitant]
     Active Substance: BUTYLSCOPOLAMINE BROMIDE
     Indication: Product used for unknown indication
     Dosage: 10MG TBL OBD 201 PACK1 TABLET 3X DAILY
  5. FENTALIS [FENTANYL] [Concomitant]
     Indication: Product used for unknown indication
  6. DEXKETOPROFEN\TRAMADOL [Concomitant]
     Active Substance: DEXKETOPROFEN\TRAMADOL
     Indication: Product used for unknown indication
  7. OMEPRAZOLE [Concomitant]
     Active Substance: OMEPRAZOLE
     Indication: Product used for unknown indication
  8. ELIQUIS [Concomitant]
     Active Substance: APIXABAN
     Indication: Product used for unknown indication
  9. CONTROLOC [Concomitant]
     Active Substance: PANTOPRAZOLE SODIUM
     Indication: Product used for unknown indication
     Dosage: 10 MG IV AT 20:00?40 MG IV AT 20:00?INFUSE 100 ML F1/1 OVER 60 MIN
  10. NOVALGINA [Concomitant]
     Active Substance: ACETAMINOPHEN\CAFFEINE
     Indication: Product used for unknown indication
     Dosage: 500 MG/ML, 2 ML IV?ADMINISTER IF VAS } 3, MAX EVERY 6 HOURS
  11. ENOXAPARIN SODIUM [Concomitant]
     Active Substance: ENOXAPARIN SODIUM
     Indication: Product used for unknown indication
     Dosage: 4000 IU (40 MG)/0.4 ML SC AT 00:00
  12. AMOXICILLIN\CLAVULANIC ACID [Concomitant]
     Active Substance: AMOXICILLIN\CLAVULANIC ACID
     Indication: Product used for unknown indication
     Dosage: 1.2 G IV AT 15:00 AND 23:00
  13. METRONIDAZOLE [Concomitant]
     Active Substance: METRONIDAZOLE
     Indication: Product used for unknown indication
     Dosage: 500 MG IV AT 15:00 AND 23:00, INFUSE OVER 60 MIN
  14. FENTANYL [Concomitant]
     Active Substance: FENTANYL
     Indication: Product used for unknown indication
     Dosage: 62.5 MCG TRANSDERMAL PATCH (LAST APPLIED 9.11)
  15. ISOLYTE [Concomitant]
     Indication: Product used for unknown indication
     Dosage: INFUSION 1:ISOLYTE, 1000 ML IV AT 200 ML/HOUR VIA LINE A NO. 1  INFUSION 2:ISOLYTE, 1000 ML IV AT 10
  16. TRAMADOL [Concomitant]
     Active Substance: TRAMADOL
     Indication: Product used for unknown indication
     Dosage: DOSE: 300 MG DILUTED IN 20 ML F1/1 SOLUTION, INFUSION RATE: 1 ML/HOUR; IF VAS ? 4, INCREASE TO 2 ML/
  17. FUROSEMIDE [Concomitant]
     Active Substance: FUROSEMIDE
     Indication: Product used for unknown indication

REACTIONS (2)
  - Diverticular perforation [Fatal]
  - Peritonitis [Fatal]
